FAERS Safety Report 4334058-5 (Version None)
Quarter: 2004Q2

REPORT INFORMATION
  Report Type: 
  Country: None (occurrence: None)
  Receive Date: 20040402
  Receipt Date: 20040329
  Transmission Date: 20050107
  Serious: Yes (Death, Life-Threatening)
  Sender: FDA-Public Use
  Company Number: 200410006BCA

PATIENT
  Age: 63 Year
  Sex: Male

DRUGS (10)
  1. MOXIFLOXACIN [Suspect]
     Indication: BRONCHITIS
     Dosage: 400 MG, TOTAL DAILY, ORAL
     Route: 048
     Dates: start: 20031125, end: 20031205
  2. MOXIFLOXACIN [Suspect]
     Indication: SINUSITIS
     Dosage: 400 MG, TOTAL DAILY, ORAL
     Route: 048
     Dates: start: 20031125, end: 20031205
  3. MOXIFLOXACIN [Suspect]
     Indication: BRONCHITIS
     Dosage: 400 MG, TOTAL DAILY, ORAL
     Route: 048
     Dates: start: 20010716
  4. MOXIFLOXACIN [Suspect]
     Indication: SINUSITIS
     Dosage: 400 MG, TOTAL DAILY, ORAL
     Route: 048
     Dates: start: 20010716
  5. ZITHROMAX [Suspect]
     Indication: SINUSITIS
     Dosage: 250 MG, TOTAL DAILY, ORAL
     Route: 048
     Dates: start: 20011029
  6. ZITHROMAX [Suspect]
     Indication: SINUSITIS
     Dosage: 250 MG, TOTAL DAILY, ORAL
     Route: 048
     Dates: start: 20021107
  7. ZITHROMAX [Suspect]
     Indication: SINUSITIS
     Dosage: 250 MG, TOTAL DAILY, ORAL
     Route: 048
     Dates: start: 20030612
  8. ZITHROMAX [Suspect]
     Indication: SINUSITIS
     Dosage: 250 MG, TOTAL DAILY, ORAL
     Route: 048
     Dates: start: 20031101
  9. PRINIVIL [Concomitant]
  10. PEN V [Concomitant]

REACTIONS (3)
  - DRUG TOXICITY [None]
  - HEPATIC FAILURE [None]
  - RENAL FAILURE [None]
